FAERS Safety Report 25284307 (Version 1)
Quarter: 2025Q2

REPORT INFORMATION
  Report Type: Spontaneous
  Country: US (occurrence: None)
  Receive Date: 20250508
  Receipt Date: 20250508
  Transmission Date: 20250717
  Serious: Yes (Other)
  Sender: FDA-CTU
  Company Number: None

PATIENT
  Age: 57 Year
  Sex: Female
  Weight: 41.4 kg

DRUGS (1)
  1. EVENITY [Suspect]
     Active Substance: ROMOSOZUMAB-AQQG
     Indication: Osteoporosis
     Route: 058
     Dates: start: 20250422

REACTIONS (7)
  - Abdominal pain upper [None]
  - Vulvovaginal pain [None]
  - Pollakiuria [None]
  - Micturition urgency [None]
  - Guillain-Barre syndrome [None]
  - Vaginal disorder [None]
  - Urinary tract infection [None]

NARRATIVE: CASE EVENT DATE: 20250429
